FAERS Safety Report 18995539 (Version 1)
Quarter: 2021Q1

REPORT INFORMATION
  Report Type: Spontaneous
  Country: DE (occurrence: DE)
  Receive Date: 20210310
  Receipt Date: 20210310
  Transmission Date: 20210420
  Serious: Yes (Hospitalization, Other)
  Sender: FDA-Public Use
  Company Number: DE-AUROBINDO-AUR-APL-2021-009255

PATIENT
  Age: 62 Year
  Sex: Male
  Weight: 91 kg

DRUGS (9)
  1. PRILOCAINE [Suspect]
     Active Substance: PRILOCAINE
     Indication: ANAESTHESIA
     Dosage: 40 MILLILITER OF 1%
     Route: 065
  2. ROCURONIUM [Suspect]
     Active Substance: ROCURONIUM BROMIDE
     Indication: GENERAL ANAESTHESIA
     Dosage: UNK
     Route: 065
  3. SEVOFLURANE. [Suspect]
     Active Substance: SEVOFLURANE
     Indication: ANAESTHESIA
     Dosage: UNK
     Route: 065
  4. TAMSULOSIN [Concomitant]
     Active Substance: TAMSULOSIN
     Indication: BENIGN PROSTATIC HYPERPLASIA
     Dosage: 0.4 MILLIGRAM
     Route: 065
  5. BUPIVACAINE SOLUTION FOR INJECTION [Suspect]
     Active Substance: BUPIVACAINE
     Indication: ANAESTHESIA
     Dosage: 10 MILLILITER, 0.5%
     Route: 065
  6. ATENOLOL. [Concomitant]
     Active Substance: ATENOLOL
     Indication: PRODUCT USED FOR UNKNOWN INDICATION
     Dosage: 100 MILLIGRAM
     Route: 065
  7. THIOPENTAL [Suspect]
     Active Substance: THIOPENTAL
     Indication: GENERAL ANAESTHESIA
     Dosage: UNK
     Route: 065
  8. ALFENTANIL. [Suspect]
     Active Substance: ALFENTANIL
     Indication: GENERAL ANAESTHESIA
     Dosage: UNK
     Route: 065
  9. ACARBOSE. [Concomitant]
     Active Substance: ACARBOSE
     Indication: PRODUCT USED FOR UNKNOWN INDICATION
     Dosage: 100 MILLIGRAM
     Route: 065

REACTIONS (5)
  - Rales [Unknown]
  - Pulmonary oedema [Unknown]
  - Orthopnoea [Unknown]
  - Oxygen saturation decreased [Unknown]
  - Blood pressure systolic decreased [Unknown]
